FAERS Safety Report 19968394 (Version 1)
Quarter: 2021Q4

REPORT INFORMATION
  Report Type: Spontaneous
  Country: US (occurrence: US)
  Receive Date: 20211019
  Receipt Date: 20211019
  Transmission Date: 20220303
  Serious: Yes (Other)
  Sender: FDA-Public Use
  Company Number: None

PATIENT
  Age: 77 Year
  Sex: Female
  Weight: 80 kg

DRUGS (1)
  1. GAMUNEX-C [Suspect]
     Active Substance: HUMAN IMMUNOGLOBULIN G
     Indication: Polyneuropathy
     Dosage: ?          OTHER FREQUENCY:DAILY FOR 2 DAYS;
     Route: 042
     Dates: start: 20210913, end: 20211017

REACTIONS (2)
  - Epistaxis [None]
  - Haemoptysis [None]

NARRATIVE: CASE EVENT DATE: 20211016
